FAERS Safety Report 7508618-4 (Version None)
Quarter: 2011Q2

REPORT INFORMATION
  Report Type: 
  Country: None (occurrence: None)
  Receive Date: 20110527
  Receipt Date: 20110301
  Transmission Date: 20111010
  Serious: No
  Sender: FDA-Public Use
  Company Number: A0917022A

PATIENT
  Age: 66 Year
  Sex: Female
  Weight: 78.5 kg

DRUGS (1)
  1. FLOLAN [Suspect]
     Dosage: 7NGKM UNKNOWN
     Route: 065
     Dates: start: 20110210

REACTIONS (2)
  - SKIN ULCER [None]
  - SKIN INFECTION [None]
